FAERS Safety Report 7083505-7 (Version None)
Quarter: 2010Q4

REPORT INFORMATION
  Report Type: 
  Country: None (occurrence: None)
  Receive Date: 20101103
  Receipt Date: 20101103
  Transmission Date: 20110411
  Serious: No
  Sender: FDA-Public Use
  Company Number: None

PATIENT

DRUGS (2)
  1. DURAGESIC-50 [Suspect]
     Indication: ARTHRALGIA
  2. DURAGESIC-50 [Suspect]
     Indication: FIBROMYALGIA

REACTIONS (8)
  - DEPRESSION [None]
  - INADEQUATE ANALGESIA [None]
  - MIGRAINE [None]
  - PALPITATIONS [None]
  - PRODUCT SUBSTITUTION ISSUE [None]
  - PRURITUS [None]
  - RESTLESS LEGS SYNDROME [None]
  - TINNITUS [None]
